FAERS Safety Report 16058062 (Version 3)
Quarter: 2019Q2

REPORT INFORMATION
  Report Type: Spontaneous
  Country: US (occurrence: US)
  Receive Date: 20190311
  Receipt Date: 20190417
  Transmission Date: 20190711
  Serious: Yes (Hospitalization, Disabling)
  Sender: FDA-Public Use
  Company Number: US-AMREGENT-20170032

PATIENT
  Age: 18 Year
  Sex: Female

DRUGS (2)
  1. HUMIRA [Concomitant]
     Active Substance: ADALIMUMAB
     Dosage: 40 MG EVERY 2 WEEKS
     Route: 058
  2. INJECTAFER [Suspect]
     Active Substance: FERRIC CARBOXYMALTOSE
     Dosage: UNKNOWN
     Route: 042
     Dates: start: 20161223, end: 20161229

REACTIONS (8)
  - Emotional distress [Not Recovered/Not Resolved]
  - Pain [Recovered/Resolved with Sequelae]
  - Hypophosphataemia [Recovered/Resolved with Sequelae]
  - Anxiety [Not Recovered/Not Resolved]
  - Product quality issue [Unknown]
  - Anhedonia [Not Recovered/Not Resolved]
  - Muscle spasms [Recovered/Resolved]
  - Muscular weakness [Unknown]

NARRATIVE: CASE EVENT DATE: 20170109
